FAERS Safety Report 5088887-3 (Version None)
Quarter: 2006Q3

REPORT INFORMATION
  Report Type: 
  Country: None (occurrence: None)
  Receive Date: 20060824
  Receipt Date: 20060824
  Transmission Date: 20061208
  Serious: Yes (Other)
  Sender: FDA-Public Use
  Company Number: None

PATIENT
  Age: 61 Year
  Sex: Male
  Weight: 57.1532 kg

DRUGS (4)
  1. ERLOTINIB 150MG GENENTECH [Suspect]
     Indication: LUNG NEOPLASM MALIGNANT
     Dosage: 15MG  DAILY ORAL
     Route: 048
  2. NEUPOGEN [Concomitant]
  3. GABAPENTIN [Concomitant]
  4. TEMAZEPAM [Concomitant]

REACTIONS (1)
  - RASH [None]
